FAERS Safety Report 17392102 (Version 1)
Quarter: 2020Q1

REPORT INFORMATION
  Report Type: Spontaneous
  Country: US (occurrence: US)
  Receive Date: 20200207
  Receipt Date: 20200207
  Transmission Date: 20200409
  Serious: No
  Sender: FDA-Public Use
  Company Number: US-TEVA-2020-US-1180471

PATIENT
  Age: 72 Year
  Sex: Female
  Weight: 56.2 kg

DRUGS (5)
  1. NEXIUM [Concomitant]
     Active Substance: ESOMEPRAZOLE MAGNESIUM
  2. TRAVATAN Z [Concomitant]
     Active Substance: TRAVOPROST
  3. QVAR REDIHALER [Suspect]
     Active Substance: BECLOMETHASONE DIPROPIONATE
     Indication: ASTHMA
     Dosage: 1 PUFF AT NIGHT
     Route: 055
  4. QVAR [Suspect]
     Active Substance: BECLOMETHASONE DIPROPIONATE
     Indication: ASTHMA
     Dosage: 1 PUFF ONCE DAILY
     Route: 055
  5. QVAR REDIHALER [Suspect]
     Active Substance: BECLOMETHASONE DIPROPIONATE
     Dosage: 1 PUFF IN MORNING
     Route: 055

REACTIONS (7)
  - Candida infection [Unknown]
  - Bronchitis [Unknown]
  - Dizziness [Unknown]
  - Wrong schedule [Unknown]
  - Wrong technique in product usage process [Unknown]
  - Product storage error [Unknown]
  - Bone density decreased [Unknown]

NARRATIVE: CASE EVENT DATE: 20200129
